FAERS Safety Report 9802482 (Version 2)
Quarter: 2014Q1

REPORT INFORMATION
  Report Type: Spontaneous
  Country: US (occurrence: US)
  Receive Date: 20140107
  Receipt Date: 20140123
  Transmission Date: 20141002
  Serious: No
  Sender: FDA-Public Use
  Company Number: US-009507513-1401USA002034

PATIENT
  Age: 53 Year
  Sex: Female
  Weight: 90.7 kg

DRUGS (8)
  1. OXYTROL FOR WOMEN [Suspect]
     Indication: POLLAKIURIA
     Dosage: 1 DF, Q4D
     Route: 062
     Dates: start: 20131207, end: 20131218
  2. LORAZEPAM [Concomitant]
     Indication: DEPRESSION
     Dosage: UNK, UNKNOWN
  3. LORAZEPAM [Concomitant]
     Indication: ANXIETY
  4. TRILEPTAL [Concomitant]
     Indication: BIPOLAR DISORDER
     Dosage: UNK, UNKNOWN
  5. DEXILANT [Concomitant]
     Indication: GASTROOESOPHAGEAL REFLUX DISEASE
     Dosage: UNK, UNKNOWN
  6. ZYRTEC [Concomitant]
     Indication: HYPERSENSITIVITY
     Dosage: UNK, UNKNOWN
  7. ALBUTEROL [Concomitant]
     Indication: ASTHMA
     Dosage: UNK, UNKNOWN
  8. MONONESSA [Concomitant]
     Indication: CONTRACEPTION
     Dosage: UNK, UNKNOWN

REACTIONS (5)
  - Hypersensitivity [Recovered/Resolved]
  - Rash [Recovered/Resolved]
  - Dry skin [Recovered/Resolved]
  - Erythema [Recovered/Resolved]
  - Pruritus [Recovered/Resolved]
